FAERS Safety Report 21174960 (Version 5)
Quarter: 2022Q3

REPORT INFORMATION
  Report Type: Spontaneous
  Country: US (occurrence: US)
  Receive Date: 20220805
  Receipt Date: 20220917
  Transmission Date: 20221027
  Serious: No
  Sender: FDA-Public Use
  Company Number: US-UNITED THERAPEUTICS-UNT-2022-017468

PATIENT
  Sex: Female
  Weight: 103.4 kg

DRUGS (10)
  1. ORENITRAM [Suspect]
     Active Substance: TREPROSTINIL
     Indication: Pulmonary arterial hypertension
     Dosage: UNK
     Route: 048
     Dates: start: 20220124
  2. ORENITRAM [Suspect]
     Active Substance: TREPROSTINIL
     Dosage: 3.75 MG BID
     Route: 048
     Dates: start: 20220730
  3. ORENITRAM [Suspect]
     Active Substance: TREPROSTINIL
     Dosage: 0.375 MG (3 TABLETS OF 0.125 MG), BID
     Route: 048
  4. ORENITRAM [Suspect]
     Active Substance: TREPROSTINIL
     Dosage: 0.25 MG, BID
     Route: 048
  5. ORENITRAM [Suspect]
     Active Substance: TREPROSTINIL
     Dosage: 0.25 MG (2 TABLETS OF 0.125 MG), TID
     Route: 048
  6. ORENITRAM [Suspect]
     Active Substance: TREPROSTINIL
     Indication: Pulmonary arterial hypertension
     Route: 048
  7. ORENITRAM [Suspect]
     Active Substance: TREPROSTINIL
     Indication: Pulmonary arterial hypertension
     Dosage: UNK
     Route: 048
  8. BENADRYL [Suspect]
     Active Substance: DIPHENHYDRAMINE HYDROCHLORIDE
     Indication: Rash
     Dosage: UNK
     Route: 065
  9. BENADRYL [Suspect]
     Active Substance: DIPHENHYDRAMINE HYDROCHLORIDE
     Indication: Pruritus
  10. WARFARIN SODIUM [Concomitant]
     Active Substance: WARFARIN SODIUM
     Indication: Product used for unknown indication
     Route: 065

REACTIONS (14)
  - Rash macular [Recovered/Resolved]
  - Pain of skin [Recovered/Resolved]
  - Ocular hyperaemia [Recovered/Resolved]
  - Eye swelling [Recovered/Resolved]
  - Pruritus [Recovered/Resolved]
  - Dry skin [Recovered/Resolved]
  - Burning sensation [Recovered/Resolved]
  - Skin injury [Recovered/Resolved]
  - Urticaria [Recovered/Resolved]
  - Retching [Recovered/Resolved]
  - Nausea [Recovered/Resolved]
  - Hypersensitivity [Recovered/Resolved]
  - Therapy non-responder [Unknown]
  - Seasonal allergy [Unknown]

NARRATIVE: CASE EVENT DATE: 20220101
